FAERS Safety Report 15242241 (Version 1)
Quarter: 2018Q3

REPORT INFORMATION
  Report Type: Spontaneous
  Country: TN (occurrence: TN)
  Receive Date: 20180806
  Receipt Date: 20180806
  Transmission Date: 20181010
  Serious: Yes (Other)
  Sender: FDA-Public Use
  Company Number: TN-INGENUS PHARMACEUTICALS NJ, LLC-ING201807-000777

PATIENT
  Age: 21 Year
  Sex: Female

DRUGS (4)
  1. LANZOPRAL [Concomitant]
     Active Substance: LANSOPRAZOLE
     Indication: LIGAMENT SPRAIN
  2. CARISOPRODOL, ASPIRIN AND CODEINE PHOSPHATE [Suspect]
     Active Substance: ASPIRIN\CARISOPRODOL\CODEINE PHOSPHATE
     Indication: LIGAMENT SPRAIN
  3. PARACETAMOL [Concomitant]
     Active Substance: ACETAMINOPHEN
  4. VOLTARENE RETARD [Concomitant]
     Indication: LIGAMENT SPRAIN

REACTIONS (1)
  - Acute generalised exanthematous pustulosis [Recovered/Resolved]
